FAERS Safety Report 21503832 (Version 1)
Quarter: 2022Q4

REPORT INFORMATION
  Report Type: Spontaneous
  Country: US (occurrence: None)
  Receive Date: 20221025
  Receipt Date: 20221025
  Transmission Date: 20230112
  Serious: Yes (Hospitalization)
  Sender: FDA-Public Use
  Company Number: None

PATIENT
  Sex: Male
  Weight: 124 kg

DRUGS (7)
  1. CARBOPLATIN [Suspect]
     Active Substance: CARBOPLATIN
  2. ETOPOSIDE [Concomitant]
     Active Substance: ETOPOSIDE
  3. NEULASTA [Concomitant]
     Active Substance: PEGFILGRASTIM
  4. AMLODIPINE [Concomitant]
     Active Substance: AMLODIPINE BESYLATE
  5. BISOPROLOLE [Concomitant]
  6. RAMIPRIL [Concomitant]
     Active Substance: RAMIPRIL
  7. XARELTO [Concomitant]

REACTIONS (5)
  - Neutropenia [None]
  - Thrombocytopenia [None]
  - Blood creatinine increased [None]
  - Tachycardia [None]
  - Bacterial sepsis [None]

NARRATIVE: CASE EVENT DATE: 20220722
